FAERS Safety Report 8471151 (Version 2)
Quarter: 2013Q1

REPORT INFORMATION
  Report Type: Spontaneous
  Country: FR (occurrence: FR)
  Receive Date: 20120322
  Receipt Date: 20130104
  Transmission Date: 20140127
  Serious: Yes (Hospitalization)
  Sender: FDA-Public Use
  Company Number: FR-BAYER-2012-026841

PATIENT
  Age: 47 Year
  Sex: Male

DRUGS (5)
  1. LEVITRA [Suspect]
     Indication: ERECTILE DYSFUNCTION
     Dosage: UNK
     Route: 048
     Dates: start: 20120130, end: 20120130
  2. DARUNAVIR [Interacting]
     Indication: HIV INFECTION
     Dosage: 600 MG, BID
     Route: 048
  3. NORVIR [Interacting]
     Indication: HIV INFECTION
     Route: 048
  4. ANTIVIRALS FOR SYSTEMIC USE [Concomitant]
     Indication: HIV INFECTION
     Dosage: 1 DF, BID
     Route: 048
  5. TRUVADA [Concomitant]
     Indication: HIV INFECTION
     Route: 048

REACTIONS (4)
  - Scotoma [Recovered/Resolved]
  - Vision blurred [Recovered/Resolved]
  - Visual acuity reduced [Recovered/Resolved]
  - Metamorphopsia [Recovered/Resolved]
